FAERS Safety Report 7898685-0 (Version None)
Quarter: 2011Q4

REPORT INFORMATION
  Report Type: 
  Country: None (occurrence: None)
  Receive Date: 20111103
  Receipt Date: 20111020
  Transmission Date: 20120403
  Serious: Yes (Hospitalization, Other)
  Sender: FDA-Public Use
  Company Number: LTI2011A00112

PATIENT
  Age: 55 Year
  Sex: Female

DRUGS (4)
  1. DIAMICRON (GLICLAZIDE) [Concomitant]
  2. STAGID (METFORMIN EMBONATE) [Concomitant]
  3. NEXIUM [Concomitant]
  4. ACTOS [Suspect]
     Indication: TYPE 2 DIABETES MELLITUS
     Dosage: 1 TAB (1 TAB., 1 IN 1 D)
     Route: 048
     Dates: end: 20110401

REACTIONS (4)
  - MICROCYTIC ANAEMIA [None]
  - DISEASE RECURRENCE [None]
  - ACUTE MYELOID LEUKAEMIA [None]
  - PLATELET COUNT DECREASED [None]
